FAERS Safety Report 19453497 (Version 5)
Quarter: 2022Q2

REPORT INFORMATION
  Report Type: Spontaneous
  Country: PR (occurrence: PR)
  Receive Date: 20210623
  Receipt Date: 20220405
  Transmission Date: 20220721
  Serious: No
  Sender: FDA-Public Use
  Company Number: PR-PFIZER INC-2021236310

PATIENT
  Age: 45 Year
  Sex: Female
  Weight: 84.37 kg

DRUGS (1)
  1. GENOTROPIN [Suspect]
     Active Substance: SOMATROPIN
     Indication: Hypothalamo-pituitary disorder
     Dosage: 0.2 MG, 1X/DAY (7 DAYS A WEEK)

REACTIONS (3)
  - Headache [Unknown]
  - Drug dose omission by device [Unknown]
  - Device breakage [Unknown]
